FAERS Safety Report 9693456 (Version 2)
Quarter: 2013Q4

REPORT INFORMATION
  Report Type: Spontaneous
  Country: FR (occurrence: FR)
  Receive Date: 20131118
  Receipt Date: 20131125
  Transmission Date: 20140711
  Serious: Yes (Hospitalization, Other)
  Sender: FDA-Public Use
  Company Number: FR-PFIZER INC-2013324634

PATIENT
  Age: 81 Year
  Sex: Female

DRUGS (8)
  1. AMLOR [Suspect]
     Dosage: 10 MG, 1X/DAY
     Route: 048
  2. AMLOR [Suspect]
     Dosage: 5 MG, DAILY
     Route: 048
  3. IMOVANE [Suspect]
     Indication: INSOMNIA
     Dosage: 3.75 MG, 1X/DAY
     Route: 048
     Dates: start: 20130924, end: 20130927
  4. SOTALOL [Concomitant]
     Dosage: 40 MG, 1X/DAY
  5. PREVISCAN [Concomitant]
     Dosage: 20 MG TABLET, 0.25 TABLET DAY1 AND DAY2 AND 0.5 TABLET ON DAY3
  6. INEXIUM [Concomitant]
     Dosage: 40 MG, 1X/DAY
     Route: 048
  7. DOLIPRANE [Concomitant]
     Dosage: 1 G, AS NEEDED
  8. LUTENYL [Concomitant]
     Dosage: 1 CURE MONTHLY

REACTIONS (6)
  - Malaise [Recovered/Resolved]
  - Loss of consciousness [Recovered/Resolved]
  - Orthostatic hypotension [Recovered/Resolved]
  - Prothrombin time ratio decreased [Not Recovered/Not Resolved]
  - Urinary tract infection [Unknown]
  - Asthenia [Unknown]
